FAERS Safety Report 9461882 (Version 1)
Quarter: 2013Q3

REPORT INFORMATION
  Report Type: Spontaneous
  Country: US (occurrence: None)
  Receive Date: 20130815
  Receipt Date: 20130815
  Transmission Date: 20140515
  Serious: Yes (Other)
  Sender: FDA-Public Use
  Company Number: None

PATIENT
  Age: 48 Year
  Sex: Female
  Weight: 69.85 kg

DRUGS (2)
  1. SYNTHROID [Suspect]
     Route: 048
     Dates: start: 20010620, end: 20010813
  2. LEVOTHYROXINE [Suspect]

REACTIONS (1)
  - Drug hypersensitivity [None]
